FAERS Safety Report 5203279-1 (Version None)
Quarter: 2006Q4

REPORT INFORMATION
  Report Type: 
  Country: None (occurrence: None)
  Receive Date: 20061016
  Receipt Date: 20060505
  Transmission Date: 20070319
  Serious: Yes (Other)
  Sender: FDA-Public Use
  Company Number: 2006061007

PATIENT
  Age: 28 Year
  Sex: Female
  Weight: 81.6475 kg

DRUGS (4)
  1. NEURONTIN [Suspect]
     Indication: PAIN
     Dosage: 1500 MG (2 IN 1 D)
     Dates: start: 20060101
  2. DEPAKOTE [Concomitant]
  3. NORTRIPTYLINE HCL [Concomitant]
  4. SYNTHROID [Concomitant]

REACTIONS (3)
  - PAIN [None]
  - VISUAL DISTURBANCE [None]
  - WEIGHT INCREASED [None]
